FAERS Safety Report 5727938-7 (Version None)
Quarter: 2008Q2

REPORT INFORMATION
  Report Type: 
  Country: None (occurrence: None)
  Receive Date: 20080505
  Receipt Date: 20080425
  Transmission Date: 20081010
  Serious: Yes (Hospitalization)
  Sender: FDA-Public Use
  Company Number: IE-PFIZER INC-2008025418

PATIENT
  Sex: Female
  Weight: 94 kg

DRUGS (6)
  1. LIPITOR [Suspect]
     Indication: HYPERCHOLESTEROLAEMIA
     Route: 048
     Dates: start: 20070918, end: 20080307
  2. ANGIOTENSIN II ANTAGONISTS [Concomitant]
  3. ASPIRIN [Concomitant]
     Indication: PROPHYLAXIS
     Dosage: DAILY DOSE:75MG
     Route: 048
  4. ELTROXIN [Concomitant]
  5. LERCANIDIPINE [Concomitant]
     Indication: HYPERTENSION
     Dosage: DAILY DOSE:10MG
     Route: 048
  6. DIOVAN HCT [Concomitant]
     Indication: HYPERTENSION
     Dosage: DAILY DOSE:160MG
     Route: 048

REACTIONS (6)
  - ABASIA [None]
  - BALANCE DISORDER [None]
  - BLOOD CREATINE PHOSPHOKINASE INCREASED [None]
  - FALL [None]
  - MYALGIA [None]
  - MYOPATHY [None]
